FAERS Safety Report 22371972 (Version 3)
Quarter: 2024Q4

REPORT INFORMATION
  Report Type: Spontaneous
  Country: US (occurrence: US)
  Receive Date: 20230526
  Receipt Date: 20241129
  Transmission Date: 20250115
  Serious: Yes (Other)
  Sender: SANOFI AVENTIS
  Company Number: US-SA-SAC20230525000730

PATIENT
  Age: 59 Year
  Sex: Male

DRUGS (2)
  1. DUPIXENT [Suspect]
     Active Substance: DUPILUMAB
     Indication: Asthma
     Dosage: 300 MG, QOW
     Route: 058
     Dates: start: 202206
  2. SCEMBLIX [Suspect]
     Active Substance: ASCIMINIB HYDROCHLORIDE
     Dosage: UNK

REACTIONS (6)
  - Melaena [Unknown]
  - Hypertension [Unknown]
  - Epistaxis [Unknown]
  - Faeces discoloured [Unknown]
  - Dyspnoea [Unknown]
  - Skin papilloma [Unknown]

NARRATIVE: CASE EVENT DATE: 20221201
